FAERS Safety Report 5375950-2 (Version None)
Quarter: 2007Q3

REPORT INFORMATION
  Report Type: 
  Country: None (occurrence: None)
  Receive Date: 20070702
  Receipt Date: 20070626
  Transmission Date: 20080115
  Serious: Yes (Hospitalization)
  Sender: FDA-Public Use
  Company Number: US-JNJFOC-20070606147

PATIENT
  Sex: Male
  Weight: 2.43 kg

DRUGS (3)
  1. MOTRIN [Suspect]
     Indication: DRUG EXPOSURE DURING PREGNANCY
  2. REBIF [Suspect]
     Indication: DRUG EXPOSURE DURING PREGNANCY
  3. ZOMIG [Suspect]
     Indication: DRUG EXPOSURE DURING PREGNANCY

REACTIONS (7)
  - ASPIRATION [None]
  - ASTHMA [None]
  - DRUG EXPOSURE DURING PREGNANCY [None]
  - DYSPHAGIA [None]
  - JAUNDICE NEONATAL [None]
  - NYSTAGMUS [None]
  - PREMATURE BABY [None]
